FAERS Safety Report 4946570-6 (Version None)
Quarter: 2006Q1

REPORT INFORMATION
  Report Type: 
  Country: None (occurrence: None)
  Receive Date: 20060317
  Receipt Date: 20060126
  Transmission Date: 20060701
  Serious: Yes (Hospitalization)
  Sender: FDA-Public Use
  Company Number: FR-GLAXOSMITHKLINE-B0408305A

PATIENT
  Age: 41 Year
  Sex: Male

DRUGS (7)
  1. TELZIR [Suspect]
     Indication: HIV INFECTION
     Dosage: 2TAB PER DAY
     Route: 048
     Dates: start: 20051001, end: 20051123
  2. COMBIVIR [Suspect]
     Indication: HIV INFECTION
     Dosage: 2TABS PER DAY
     Route: 048
     Dates: start: 20051001, end: 20051123
  3. NORVIR [Suspect]
     Indication: HIV INFECTION
     Dosage: 100MG TWICE PER DAY
     Route: 048
     Dates: start: 20051001, end: 20051123
  4. SPECIAFOLDINE [Suspect]
     Dosage: 5MG PER DAY
     Route: 048
  5. SUBUTEX [Suspect]
     Dosage: 12MG PER DAY
     Route: 048
  6. BACTRIM [Suspect]
     Dosage: 480MG PER DAY
     Route: 048
  7. INDINIVIR SULFATE [Concomitant]
     Indication: HIV INFECTION
     Route: 065
     Dates: end: 20040101

REACTIONS (9)
  - ABDOMINAL PAIN [None]
  - BRONCHOPLEURAL FISTULA [None]
  - CALCULUS URETHRAL [None]
  - NEPHROLITHIASIS [None]
  - PNEUMOTHORAX [None]
  - PULMONARY NECROSIS [None]
  - PYREXIA [None]
  - RENAL PAIN [None]
  - SEPTIC SHOCK [None]
